FAERS Safety Report 7580616-4 (Version None)
Quarter: 2011Q2

REPORT INFORMATION
  Report Type: 
  Country: None (occurrence: None)
  Receive Date: 20110629
  Receipt Date: 20110621
  Transmission Date: 20111010
  Serious: Yes (Hospitalization)
  Sender: FDA-Public Use
  Company Number: B0729393A

PATIENT

DRUGS (1)
  1. ATRIANCE [Suspect]
     Dosage: 2.75G PER DAY
     Route: 042
     Dates: start: 20090221, end: 20090225

REACTIONS (5)
  - DISTURBANCE IN ATTENTION [None]
  - PETIT MAL EPILEPSY [None]
  - AREFLEXIA [None]
  - HYPERSOMNIA [None]
  - MEMORY IMPAIRMENT [None]
